FAERS Safety Report 5655192-3 (Version None)
Quarter: 2008Q1

REPORT INFORMATION
  Report Type: 
  Country: None (occurrence: None)
  Receive Date: 20080307
  Receipt Date: 20080227
  Transmission Date: 20080703
  Serious: Yes (Death, Hospitalization)
  Sender: FDA-Public Use
  Company Number: FI-ROCHE-536474

PATIENT
  Age: 79 Year
  Sex: Male
  Weight: 76 kg

DRUGS (14)
  1. METHOXY POLYETHYLENE GLYCOL-EPOETIN BETA [Suspect]
     Dosage: DOSAGE FORM REPORTED AS VIAL.
     Route: 042
     Dates: start: 20071004, end: 20071218
  2. DARBEPOETIN ALFA [Suspect]
     Route: 042
  3. FURSEMIDE [Concomitant]
     Dates: start: 20060505, end: 20071218
  4. BISOPROLOL FUMARATE [Concomitant]
     Dosage: REPORTED AS BISOBROLOL.
     Dates: end: 20071218
  5. NIFEDIPINE [Concomitant]
     Dates: end: 20071218
  6. RAMIPRIL [Concomitant]
     Dates: end: 20071218
  7. INSULIN HUMAN [Concomitant]
     Dates: end: 20071218
  8. PRAVASTATIN [Concomitant]
     Dates: end: 20071218
  9. ALLOPURINOL [Concomitant]
     Dates: start: 20060330, end: 20071218
  10. ASPIRIN [Concomitant]
     Dates: end: 20071218
  11. TAMSULOSIN HCL [Concomitant]
     Dates: start: 20060328, end: 20071218
  12. PANTOPRAZOLE [Concomitant]
     Dates: end: 20071218
  13. CALCIUM CARBONATE [Concomitant]
     Dates: start: 20050521, end: 20071218
  14. POLYSTYRENE SULFONATE [Concomitant]
     Dates: start: 20070306, end: 20071218

REACTIONS (2)
  - DEATH [None]
  - INFECTION [None]
